FAERS Safety Report 25916020 (Version 1)
Quarter: 2025Q4

REPORT INFORMATION
  Report Type: Report from Study
  Country: EU (occurrence: EU)
  Receive Date: 20251013
  Receipt Date: 20251013
  Transmission Date: 20260118
  Serious: Yes (Hospitalization)
  Sender: ABBVIE
  Company Number: EU-ABBVIE-6499536

PATIENT
  Age: 72 Year

DRUGS (2)
  1. FOSCARBIDOPA\FOSLEVODOPA [Suspect]
     Active Substance: FOSCARBIDOPA\FOSLEVODOPA
     Indication: Parkinson^s disease
     Dosage: MORNING DOSE: 8ML, CONTINUOUS DOSE: 3.5ML/H, EXTRA DOSE: 1.5ML, LOCK TIME: 1 HOUR
     Route: 058
     Dates: start: 20231016
  2. FOSCARBIDOPA\FOSLEVODOPA [Suspect]
     Active Substance: FOSCARBIDOPA\FOSLEVODOPA
     Dosage: REDUCED DOSE:?MORNING DOSE: 4ML, CONTINUOUS DOSE: 1.5ML/H, EXTRA DOSE: 1.5ML, LOCK TIME: 1 HOUR
     Route: 058

REACTIONS (1)
  - Intensive care [Unknown]

NARRATIVE: CASE EVENT DATE: 20251010
